FAERS Safety Report 9086197 (Version 1)
Quarter: 2013Q1

REPORT INFORMATION
  Report Type: Report from Study
  Country: US (occurrence: US)
  Receive Date: 20130131
  Receipt Date: 20130131
  Transmission Date: 20140127
  Serious: No
  Sender: FDA-Public Use
  Company Number: US-ABBOTT-12P-163-1015070-00

PATIENT
  Sex: Female

DRUGS (3)
  1. HUMIRA [Suspect]
     Indication: PSORIASIS
     Dates: start: 2010, end: 201204
  2. SYNTHROID [Concomitant]
     Indication: THYROIDECTOMY
  3. WELLBUTRIN [Concomitant]
     Indication: DEPRESSION

REACTIONS (1)
  - Pneumonia [Recovered/Resolved]
